FAERS Safety Report 5293008-8 (Version None)
Quarter: 2007Q2

REPORT INFORMATION
  Report Type: 
  Country: None (occurrence: None)
  Receive Date: 20070411
  Receipt Date: 20070404
  Transmission Date: 20071010
  Serious: Yes (Hospitalization)
  Sender: FDA-Public Use
  Company Number: JP-ELI_LILLY_AND_COMPANY-JP200702000597

PATIENT
  Age: 66 Year
  Sex: Female
  Weight: 54.8 kg

DRUGS (3)
  1. GEMZAR [Suspect]
     Indication: LUNG ADENOCARCINOMA STAGE IV
     Dosage: 1500 MG, UNK
     Route: 042
     Dates: start: 20070124, end: 20070124
  2. CODEINE PHOSPHATE [Concomitant]
     Dosage: 1 D/F, 3/D
     Route: 048
     Dates: start: 20061219
  3. AZULFIDINE EN [Concomitant]
     Dosage: 1 D/F, 2/D
     Route: 048
     Dates: start: 19930101

REACTIONS (6)
  - BLADDER DISORDER [None]
  - CYSTITIS [None]
  - HAEMOGLOBIN DECREASED [None]
  - RECALL PHENOMENON [None]
  - THROMBOSIS [None]
  - URINARY RETENTION [None]
